FAERS Safety Report 7744897-6 (Version None)
Quarter: 2011Q3

REPORT INFORMATION
  Report Type: 
  Country: None (occurrence: None)
  Receive Date: 20110913
  Receipt Date: 20110905
  Transmission Date: 20111222
  Serious: Yes (Hospitalization, Other)
  Sender: FDA-Public Use
  Company Number: FR-AMGEN-FRASP2011037817

PATIENT
  Age: 39 Year
  Sex: Male

DRUGS (8)
  1. CARTREX [Concomitant]
     Dosage: 100 MG, 1X/DAY
     Route: 048
     Dates: start: 20090101
  2. CYMBALTA [Concomitant]
     Dosage: 60 MG, 1X/DAY
     Route: 048
     Dates: start: 20110101
  3. ENBREL [Suspect]
     Indication: ANKYLOSING SPONDYLITIS
     Dosage: 50 MG, WEEKLY
     Route: 058
     Dates: start: 20050101, end: 20110701
  4. NEXIUM [Concomitant]
     Dosage: 20 MG, QD
     Route: 048
     Dates: start: 20090101
  5. CYMBALTA [Concomitant]
     Dosage: 30 MG, 1X/DAY
     Route: 048
     Dates: end: 20110101
  6. ACETAMINOPHEN [Concomitant]
     Dosage: UNK ON DEMAND
     Route: 048
  7. CYMBALTA [Concomitant]
     Dosage: UNK
     Route: 048
  8. CLONAZEPAM [Concomitant]
     Dosage: 32 DROPS DAILY
     Route: 048
     Dates: start: 20090101

REACTIONS (10)
  - FATIGUE [None]
  - APICAL GRANULOMA [None]
  - GASTROENTERITIS [None]
  - ASPHYXIA [None]
  - RENAL FUNCTION TEST ABNORMAL [None]
  - INFECTION [None]
  - HIP ARTHROPLASTY [None]
  - PANCREATITIS ACUTE [None]
  - DYSPHAGIA [None]
  - TOOTH EXTRACTION [None]
